FAERS Safety Report 17475065 (Version 1)
Quarter: 2020Q1

REPORT INFORMATION
  Report Type: Report from Study
  Country: BR (occurrence: BR)
  Receive Date: 20200228
  Receipt Date: 20200228
  Transmission Date: 20200409
  Serious: Yes (Hospitalization)
  Sender: FDA-Public Use
  Company Number: BR-JNJFOC-20190203273

PATIENT
  Age: 23 Year
  Sex: Male
  Weight: 58 kg

DRUGS (15)
  1. MORPHINE [Concomitant]
     Active Substance: MORPHINE
     Indication: PAIN
     Route: 065
  2. COMBIRON [Concomitant]
     Active Substance: ASCORBIC ACID\FERROUS SULFATE\FOLIC ACID\PYRIDOXINE HYDROCHLORIDE\RIBOFLAVIN\THIAMINE MONONITRATE
     Route: 065
  3. CLONAZEPAM. [Concomitant]
     Active Substance: CLONAZEPAM
     Indication: SLEEP DISORDER THERAPY
     Route: 065
  4. AMITRIPTYLINE [Concomitant]
     Active Substance: AMITRIPTYLINE
     Route: 065
  5. BUSCOPAN [Concomitant]
     Active Substance: BUTYLSCOPOLAMINE BROMIDE
     Route: 065
  6. GLUTAMINE [Concomitant]
     Active Substance: GLUTAMINE
     Route: 065
  7. CALCIUM CARBONATE. [Concomitant]
     Active Substance: CALCIUM CARBONATE
     Route: 065
  8. DIPIRONA [Concomitant]
     Active Substance: METAMIZOLE
     Route: 065
  9. STELARA [Suspect]
     Active Substance: USTEKINUMAB
     Indication: CROHN^S DISEASE
     Dosage: THE PATIENT INJECTED HIS LAST DOSE OF USTEKINUMAB ON 14-FEB-2019
     Route: 058
     Dates: start: 20181215
  10. TRAMAL [Concomitant]
     Active Substance: TRAMADOL
     Dosage: 6/6 HOUR
     Route: 030
  11. DIPYRONE [Concomitant]
     Active Substance: DIPYRONE
     Route: 065
  12. VALPROATE SEMISODIUM [Concomitant]
     Active Substance: DIVALPROEX SODIUM
     Route: 065
  13. MELATONINE [Concomitant]
     Active Substance: MELATONIN
     Route: 065
  14. PREDNISONE. [Concomitant]
     Active Substance: PREDNISONE
     Route: 065
  15. MAGNESIUM SULFATE. [Concomitant]
     Active Substance: MAGNESIUM SULFATE
     Route: 065

REACTIONS (6)
  - Aggression [Not Recovered/Not Resolved]
  - Product dose omission [Unknown]
  - Crohn^s disease [Not Recovered/Not Resolved]
  - Insomnia [Not Recovered/Not Resolved]
  - Intestinal stenosis [Recovered/Resolved]
  - Headache [Not Recovered/Not Resolved]

NARRATIVE: CASE EVENT DATE: 201812
